FAERS Safety Report 5541540-1 (Version None)
Quarter: 2007Q4

REPORT INFORMATION
  Report Type: 
  Country: None (occurrence: None)
  Receive Date: 20071205
  Receipt Date: 20071119
  Transmission Date: 20080405
  Serious: Yes (Death, Life-Threatening)
  Sender: FDA-Public Use
  Company Number: 2006JP003552

PATIENT
  Sex: Female
  Weight: 34.4 kg

DRUGS (15)
  1. TACROLIMUS [Suspect]
     Indication: RHEUMATOID ARTHRITIS
     Dosage: 1.5 MG, D, ORAL
     Route: 048
     Dates: start: 20060126, end: 20060224
  2. PREDNISONE [Concomitant]
  3. LOXONIN                  (LOXOPROFEN SODIUM) [Concomitant]
  4. LANSOPRAZOLE [Concomitant]
  5. PROTECADIN                        (LAFUTIDINE) [Concomitant]
  6. KAMAG G                   (MAGNESIUM OXIDE) [Concomitant]
  7. DIOVAN [Concomitant]
  8. PRAVASTATIN [Concomitant]
  9. ONEALFA                   (ALFACALCIDOL) [Concomitant]
  10. PAXIL [Concomitant]
  11. PURSENNID                            (SENNOSIDE A+B) [Concomitant]
  12. AZULFIDINE EN-TABS [Concomitant]
  13. LACTEC (SODIUM LACTATE, SODIUM CHLORIDE, CALCIUM CHLORIDE ANHYDROUS, P [Concomitant]
  14. AMINOFLUID                          (GLUCOSE, AMINO ACIDS NOS, ELECTRO [Concomitant]
  15. ACTIT (MALTOSE, MAGNESIUM CHLORIDE ANHYDROUS, POTASSIUM PHOSPHATE DIBA [Concomitant]

REACTIONS (7)
  - BACTERAEMIA [None]
  - BLOOD GLUCOSE INCREASED [None]
  - BLOOD PRESSURE INCREASED [None]
  - CYSTITIS [None]
  - HAEMATURIA [None]
  - HYPOPROTEINAEMIA [None]
  - PNEUMONIA [None]
